FAERS Safety Report 4954551-1 (Version None)
Quarter: 2006Q1

REPORT INFORMATION
  Report Type: 
  Country: None (occurrence: None)
  Receive Date: 20060322
  Receipt Date: 20060303
  Transmission Date: 20060701
  Serious: Yes (Disabling)
  Sender: FDA-Public Use
  Company Number: DSA_27857_2006

PATIENT
  Age: 70 Year
  Sex: Female

DRUGS (5)
  1. RENIVACE [Suspect]
     Indication: CARDIAC FAILURE
     Dosage: 2.5 MG Q DAY PO
     Route: 048
     Dates: start: 20030101
  2. ALDACTONE [Concomitant]
  3. DIGOXIN [Concomitant]
  4. WARFARIN SODIUM [Concomitant]
  5. MUCODYNE [Concomitant]

REACTIONS (3)
  - ANOREXIA [None]
  - COUGH [None]
  - DYSPHAGIA [None]
